FAERS Safety Report 10015939 (Version 2)
Quarter: 2014Q2

REPORT INFORMATION
  Report Type: Report from Study
  Country: JP (occurrence: JP)
  Receive Date: 20140317
  Receipt Date: 20140512
  Transmission Date: 20141212
  Serious: Yes (Death, Other)
  Sender: FDA-Public Use
  Company Number: JP-TAKEDA-2014TUS001835

PATIENT
  Age: 78 Year
  Sex: Female
  Weight: 30 kg

DRUGS (6)
  1. FEBURIC [Suspect]
     Indication: HYPERURICAEMIA
     Dosage: 20 MG, QD
     Route: 048
     Dates: start: 20121005, end: 20130423
  2. LASIX                              /00032601/ [Concomitant]
     Indication: OEDEMA
     Dosage: 20 MG, QD
     Route: 048
     Dates: start: 20121005, end: 20130423
  3. PARIET [Concomitant]
     Indication: GASTROOESOPHAGEAL REFLUX DISEASE
     Dosage: 10 MG, QD
     Route: 048
     Dates: start: 20121005, end: 20130423
  4. COLONEL [Concomitant]
     Indication: GASTROINTESTINAL DISORDER
     Dosage: 3.6 G, QD
     Route: 048
     Dates: start: 20121005, end: 20130423
  5. LENDORMIN DAINIPPO [Concomitant]
     Indication: INSOMNIA
     Dosage: 0.25 MG, QD
     Route: 048
     Dates: start: 20121005, end: 20130423
  6. CELECOX [Concomitant]
     Indication: BACK PAIN
     Dosage: 200 MG, QD
     Route: 048
     Dates: start: 20121005, end: 20130423

REACTIONS (4)
  - Bile duct cancer [Fatal]
  - Iron deficiency anaemia [Not Recovered/Not Resolved]
  - Gamma-glutamyltransferase increased [Not Recovered/Not Resolved]
  - Aspartate aminotransferase increased [Recovered/Resolved]
